FAERS Safety Report 5760865-8 (Version None)
Quarter: 2008Q2

REPORT INFORMATION
  Report Type: 
  Country: None (occurrence: None)
  Receive Date: 20080606
  Receipt Date: 20080530
  Transmission Date: 20081010
  Serious: Yes (Hospitalization)
  Sender: FDA-Public Use
  Company Number: US-ASTRAZENECA-2008UW10979

PATIENT
  Age: 60 Year
  Sex: Female
  Weight: 65.8 kg

DRUGS (4)
  1. SEROQUEL [Suspect]
     Indication: BIPOLAR DISORDER
     Route: 048
  2. SEROQUEL [Suspect]
     Route: 048
     Dates: start: 20070101, end: 20080501
  3. CHLORAL HYDRATE [Concomitant]
  4. KLONOPIN [Concomitant]

REACTIONS (5)
  - BLOOD GLUCOSE INCREASED [None]
  - CYSTITIS [None]
  - FATIGUE [None]
  - MULTIPLE SCLEROSIS [None]
  - WEIGHT INCREASED [None]
